FAERS Safety Report 9537908 (Version 2)
Quarter: 2013Q4

REPORT INFORMATION
  Report Type: Report from Study
  Country: BR (occurrence: BR)
  Receive Date: 20130919
  Receipt Date: 20131007
  Transmission Date: 20140711
  Serious: Yes (Hospitalization, Other)
  Sender: FDA-Public Use
  Company Number: PHHY2013BR104072

PATIENT
  Sex: Female

DRUGS (7)
  1. SIMVASTATINE [Suspect]
     Indication: BLOOD CHOLESTEROL
     Dosage: 20 MG
  2. SIMVASTATINE [Suspect]
     Dosage: 20 MG
     Dates: start: 20130926
  3. ENALAPRIL [Concomitant]
  4. LOSARTAN [Concomitant]
  5. CLORANA [Concomitant]
  6. VERTIX [Concomitant]
     Indication: LABYRINTHITIS
  7. FUROSEMIDE [Concomitant]

REACTIONS (3)
  - Blood pressure increased [Not Recovered/Not Resolved]
  - Feeling hot [Unknown]
  - Sleep disorder [Unknown]
